FAERS Safety Report 7711390-6 (Version None)
Quarter: 2011Q3

REPORT INFORMATION
  Report Type: 
  Country: None (occurrence: None)
  Receive Date: 20110817
  Receipt Date: 20110812
  Transmission Date: 20111222
  Serious: Yes (Death)
  Sender: FDA-Public Use
  Company Number: THYM-1000874

PATIENT
  Age: 54 Year
  Sex: Male
  Weight: 60 kg

DRUGS (15)
  1. FLUDARABINE PHOPSHATE (FLUDARABINE PHOSPHATE) [Concomitant]
  2. CEFTAZIDIME [Concomitant]
  3. CEFEPIME HYDROCHLORIDE [Concomitant]
  4. CLINDAMYCIN PHOSPHATE [Concomitant]
  5. THYMOGLOBULIN [Suspect]
     Indication: BONE MARROW CONDITIONING REGIMEN
     Dosage: 2.5, 147.5 MG, QD, INTRAVENOUS
     Route: 042
     Dates: start: 20081210, end: 20081210
  6. SULFGAMETHOPRIM (SULFAMETHOXAZOLE, TRIMETHOPRIM) [Concomitant]
  7. MYCOPHENOLATE MOFETIL [Concomitant]
  8. METHOTREXATE [Concomitant]
  9. CIPROFLOXACIN HYDROCHLORIDE (CIPROFLOXACIN HYDROCHLORIDE) [Concomitant]
  10. VANCOMYCIN HYDROCHLORIDE [Concomitant]
  11. MELPHALAN HYDROCHLORIDE [Concomitant]
  12. METHYLPREDNISOLONE [Concomitant]
  13. ACICLOVIR (ACICLOVIR SODIUIM) [Concomitant]
  14. MICAFUNGIN SODIUM (MICAFUNGIN SODIUM) [Concomitant]
  15. TACROLIMUS [Concomitant]

REACTIONS (10)
  - DEPRESSED LEVEL OF CONSCIOUSNESS [None]
  - CARDIAC FAILURE [None]
  - IMMUNE SYSTEM DISORDER [None]
  - ENGRAFT FAILURE [None]
  - NEOPLASM PROGRESSION [None]
  - MULTI-ORGAN FAILURE [None]
  - PERIPHERAL T-CELL LYMPHOMA UNSPECIFIED [None]
  - RENAL FAILURE [None]
  - FEBRILE NEUTROPENIA [None]
  - TRICHOSPORON INFECTION [None]
